FAERS Safety Report 6133110-1 (Version None)
Quarter: 2009Q1

REPORT INFORMATION
  Report Type: 
  Country: None (occurrence: None)
  Receive Date: 20090326
  Receipt Date: 20090319
  Transmission Date: 20090719
  Serious: Yes (Hospitalization)
  Sender: FDA-Public Use
  Company Number: DE-BIOGENIDEC-2009BI008248

PATIENT
  Age: 41 Year
  Sex: Male

DRUGS (8)
  1. TYSABRI [Suspect]
     Indication: MULTIPLE SCLEROSIS
     Route: 042
     Dates: start: 20071207
  2. MITOXANTHRONE [Concomitant]
     Indication: MULTIPLE SCLEROSIS
     Dates: start: 20080708, end: 20080708
  3. PREDNISOLONE [Concomitant]
     Dates: start: 20080707, end: 20080709
  4. BACLOFEN [Concomitant]
     Dates: start: 20080701
  5. CITALOPRAM HYDROCHLORIDE [Concomitant]
     Indication: DEPRESSION
     Dates: start: 20080701
  6. ARICEPT [Concomitant]
  7. PROVIGIL [Concomitant]
  8. AMANTADINE HCL [Concomitant]

REACTIONS (1)
  - STAPHYLOCOCCAL INFECTION [None]
